FAERS Safety Report 16290651 (Version 1)
Quarter: 2019Q2

REPORT INFORMATION
  Report Type: Spontaneous
  Country: US (occurrence: US)
  Receive Date: 20190509
  Receipt Date: 20190509
  Transmission Date: 20190711
  Serious: Yes (Other)
  Sender: FDA-Public Use
  Company Number: US-SA-2019SA125626

PATIENT
  Age: 76 Year

DRUGS (1)
  1. PLAVIX [Suspect]
     Active Substance: CLOPIDOGREL BISULFATE
     Dosage: UNK
     Route: 065

REACTIONS (9)
  - Appendicitis perforated [Unknown]
  - Ageusia [Unknown]
  - Fatigue [Unknown]
  - Sleep disorder [Unknown]
  - Hot flush [Unknown]
  - Flushing [Unknown]
  - Muscle disorder [Unknown]
  - Headache [Unknown]
  - Adverse event [Unknown]
